FAERS Safety Report 8489423-1 (Version None)
Quarter: 2012Q2

REPORT INFORMATION
  Report Type: 
  Country: None (occurrence: None)
  Receive Date: 20120628
  Receipt Date: 20120628
  Transmission Date: 20120825
  Serious: Yes (Life-Threatening, Hospitalization)
  Sender: FDA-Public Use
  Company Number: None

PATIENT
  Sex: Male
  Weight: 89 kg

DRUGS (2)
  1. SIMPONI [Suspect]
     Indication: PSORIATIC ARTHROPATHY
     Dosage: 50 MG MONTHLY SUBCUTANEOUSLY
     Route: 058
     Dates: start: 20120605
  2. SIMPONI [Suspect]
     Indication: PSORIATIC ARTHROPATHY
     Dosage: 50 MG MONTHLY SUBCUTANEOUSLY
     Route: 058
     Dates: start: 20120505

REACTIONS (4)
  - PNEUMONIA [None]
  - PNEUMONITIS [None]
  - ACUTE RESPIRATORY DISTRESS SYNDROME [None]
  - HYPOXIA [None]
